FAERS Safety Report 19035839 (Version 1)
Quarter: 2021Q1

REPORT INFORMATION
  Report Type: Spontaneous
  Country: SE (occurrence: SE)
  Receive Date: 20210321
  Receipt Date: 20210321
  Transmission Date: 20210420
  Serious: Yes (Hospitalization)
  Sender: FDA-Public Use
  Company Number: SE-TEVA-2021-SE-1891745

PATIENT
  Age: 71 Year
  Sex: Female

DRUGS (10)
  1. SAROTEN [Concomitant]
     Active Substance: AMITRIPTYLINE
     Dosage: 100 MG
  2. ENALAPRIL [Concomitant]
     Active Substance: ENALAPRIL
  3. TROMBYL [Concomitant]
     Active Substance: ASPIRIN
     Dosage: 75 MG
  4. PANODIL FORTE [Concomitant]
  5. AMLODIPINE [Concomitant]
     Active Substance: AMLODIPINE BESYLATE
  6. GABAPENTIN. [Suspect]
     Active Substance: GABAPENTIN
     Indication: PAIN
     Dosage: AS PRESCRIBED
     Route: 048
     Dates: start: 20200728
  7. BEVIPLEX COMP [Concomitant]
     Dosage: 1 DF
  8. OMEPRAZOLE. [Concomitant]
     Active Substance: OMEPRAZOLE
     Dosage: 20 MG
  9. KALCIPOS?D FORTE [Concomitant]
     Active Substance: CALCIUM CARBONATE\CHOLECALCIFEROL
     Dosage: 1 DF
  10. ATORVASTATIN [Concomitant]
     Active Substance: ATORVASTATIN
     Dosage: 20 MG

REACTIONS (1)
  - Blood pressure decreased [Recovering/Resolving]

NARRATIVE: CASE EVENT DATE: 20210117
